FAERS Safety Report 4906332-2 (Version None)
Quarter: 2006Q1

REPORT INFORMATION
  Report Type: 
  Country: None (occurrence: None)
  Receive Date: 20060209
  Receipt Date: 20060130
  Transmission Date: 20060701
  Serious: Yes (Other)
  Sender: FDA-Public Use
  Company Number: US-JNJFOC-20060200456

PATIENT
  Sex: Female
  Weight: 28.58 kg

DRUGS (1)
  1. CONCERTA [Suspect]

REACTIONS (1)
  - GROWTH RETARDATION [None]
